FAERS Safety Report 8994925 (Version 1)
Quarter: 2013Q1

REPORT INFORMATION
  Report Type: Spontaneous
  Country: US (occurrence: US)
  Receive Date: 20130102
  Receipt Date: 20130102
  Transmission Date: 20140127
  Serious: No
  Sender: FDA-Public Use
  Company Number: US-AMGEN-USASP2012077774

PATIENT
  Age: 54 Year
  Sex: Female

DRUGS (3)
  1. ENBREL [Suspect]
     Indication: RHEUMATOID ARTHRITIS
     Dosage: 50MG/1/WEEKLY
     Dates: start: 20121126
  2. ENBREL [Suspect]
  3. METHOTREXATE [Concomitant]
     Dosage: 100UNITS/1 ML/WEEKLY

REACTIONS (1)
  - Injection site pain [Not Recovered/Not Resolved]
